FAERS Safety Report 15367365 (Version 4)
Quarter: 2018Q4

REPORT INFORMATION
  Report Type: Report from Study
  Country: US (occurrence: US)
  Receive Date: 20180910
  Receipt Date: 20181011
  Transmission Date: 20190204
  Serious: Yes (Other)
  Sender: FDA-Public Use
  Company Number: US-SA-2018SA250315

PATIENT
  Age: 70 Year
  Sex: Female

DRUGS (5)
  1. AGALSIDASE BETA [Suspect]
     Active Substance: AGALSIDASE BETA
     Indication: FABRY^S DISEASE
     Dosage: 80.00 UNK, Q2
     Route: 041
     Dates: start: 20160627
  2. AGALSIDASE BETA [Suspect]
     Active Substance: AGALSIDASE BETA
     Dosage: 80 MG, QOW
     Route: 041
     Dates: start: 20170405, end: 20180830
  3. AGALSIDASE BETA [Suspect]
     Active Substance: AGALSIDASE BETA
     Dosage: 80.00 UNK, Q2
     Route: 041
     Dates: start: 2018, end: 20181003
  4. TYLENOL [Suspect]
     Active Substance: ACETAMINOPHEN
  5. BENADRYL [Suspect]
     Active Substance: DIPHENHYDRAMINE HYDROCHLORIDE

REACTIONS (3)
  - Atrial fibrillation [Recovered/Resolved]
  - Urticaria [Not Recovered/Not Resolved]
  - Inappropriate schedule of product administration [Unknown]

NARRATIVE: CASE EVENT DATE: 201806
